FAERS Safety Report 19392541 (Version 1)
Quarter: 2021Q2

REPORT INFORMATION
  Report Type: Report from Study
  Country: FR (occurrence: FR)
  Receive Date: 20210608
  Receipt Date: 20210608
  Transmission Date: 20210717
  Serious: Yes (Death)
  Sender: FDA-Public Use
  Company Number: FR-JNJFOC-20210612652

PATIENT
  Sex: Female
  Weight: 65 kg

DRUGS (8)
  1. DOLIPRANE [Concomitant]
     Active Substance: ACETAMINOPHEN
     Indication: PSORIASIS
     Dates: start: 20121102
  2. DAIVOBET [Concomitant]
     Active Substance: BETAMETHASONE DIPROPIONATE\CALCIPOTRIENE
     Indication: PSORIASIS
     Dates: start: 20130524
  3. LEDERFOLINE [Concomitant]
     Active Substance: LEUCOVORIN CALCIUM
     Indication: PSORIASIS
     Dates: start: 20130902
  4. DIPROSALIC [Concomitant]
     Active Substance: BETAMETHASONE DIPROPIONATE
     Indication: PSORIASIS
     Dates: start: 20130524
  5. DERMOVAL [BETAMETHASONE] [Concomitant]
     Active Substance: BETAMETHASONE
     Indication: PSORIASIS
     Dates: start: 20120615
  6. ATARAX [Concomitant]
     Active Substance: HYDROXYZINE HYDROCHLORIDE
     Indication: PSORIASIS
     Dates: start: 20130902
  7. LARMABAK [Concomitant]
     Indication: PSORIASIS
     Dates: start: 20120921
  8. REMICADE [Suspect]
     Active Substance: INFLIXIMAB
     Indication: PSORIASIS
     Route: 042
     Dates: start: 20130607, end: 20140103

REACTIONS (1)
  - Pancreatic carcinoma metastatic [Fatal]
